FAERS Safety Report 23050890 (Version 1)
Quarter: 2023Q4

REPORT INFORMATION
  Report Type: Spontaneous
  Country: US (occurrence: None)
  Receive Date: 20231009
  Receipt Date: 20231009
  Transmission Date: 20240110
  Serious: Yes (Disabling)
  Sender: FDA-Public Use
  Company Number: None

PATIENT
  Age: 42 Year
  Sex: Female
  Weight: 60.75 kg

DRUGS (11)
  1. BOTOX [Suspect]
     Active Substance: ONABOTULINUMTOXINA
     Indication: Skin wrinkling
     Route: 058
     Dates: start: 20180224, end: 20230104
  2. PROGESTERONE [Concomitant]
     Active Substance: PROGESTERONE
  3. VITAMIN D NOS [Concomitant]
     Active Substance: VITAMIN D NOS
  4. POTASSIUM [Concomitant]
     Active Substance: POTASSIUM
  5. C [Concomitant]
  6. E [Concomitant]
  7. VITAMIN B COMPLEX [Concomitant]
     Active Substance: CYANOCOBALAMIN\DEXPANTHENOL\NIACINAMIDE\PYRIDOXINE HYDROCHLORIDE\RIBOFLAVIN 5^-PHOSPHATE SODIUM\THIA
  8. TAURINE [Concomitant]
     Active Substance: TAURINE
  9. MAGNESIUM [Concomitant]
     Active Substance: MAGNESIUM
  10. Electrolyte drinks [Concomitant]
  11. ASPIRIN [Concomitant]
     Active Substance: ASPIRIN

REACTIONS (17)
  - Dyspnoea [None]
  - Dizziness [None]
  - Dry mouth [None]
  - Dysphagia [None]
  - Hypoaesthesia [None]
  - Paraesthesia [None]
  - Paralysis [None]
  - Tremor [None]
  - Dizziness [None]
  - Speech disorder [None]
  - Heart rate increased [None]
  - Hypotension [None]
  - Hypertension [None]
  - Headache [None]
  - Hot flush [None]
  - Blood potassium decreased [None]
  - Urinary tract infection [None]

NARRATIVE: CASE EVENT DATE: 20230117
